FAERS Safety Report 18045381 (Version 1)
Quarter: 2020Q3

REPORT INFORMATION
  Report Type: Spontaneous
  Country: HR (occurrence: HR)
  Receive Date: 20200720
  Receipt Date: 20200720
  Transmission Date: 20201103
  Serious: Yes (Other)
  Sender: FDA-Public Use
  Company Number: NVSC2020HR200478

PATIENT
  Age: 69 Year
  Sex: Female
  Weight: 78 kg

DRUGS (4)
  1. VALSACOR [Concomitant]
     Active Substance: VALSARTAN
     Indication: ESSENTIAL HYPERTENSION
     Dosage: 80 MG
     Route: 048
     Dates: start: 20180829
  2. TULIP (ATORVASTATIN CALCIUM) [Suspect]
     Active Substance: ATORVASTATIN CALCIUM
     Indication: DUODENITIS
     Dosage: 10 MG, QD (0, 0, 1)
     Route: 048
     Dates: start: 20200120, end: 202003
  3. NORMABEL [Concomitant]
     Active Substance: DIAZEPAM
     Indication: NEUROSIS
     Dosage: 2 MG, PRN
     Route: 048
     Dates: start: 20180528
  4. ZALDIAR [Concomitant]
     Active Substance: ACETAMINOPHEN\TRAMADOL HYDROCHLORIDE
     Indication: LIMB INJURY
     Dosage: 1 DF (DF = 37.5 MG TRAMADOL HYDROCHLORIDE + 325 MG PARACETAMOL)
     Route: 048
     Dates: start: 20181119

REACTIONS (2)
  - Cardiac fibrillation [Recovered/Resolved]
  - Chest pain [Recovered/Resolved]

NARRATIVE: CASE EVENT DATE: 202002
